FAERS Safety Report 18253437 (Version 1)
Quarter: 2020Q3

REPORT INFORMATION
  Report Type: Report from Study
  Country: US (occurrence: US)
  Receive Date: 20200910
  Receipt Date: 20200910
  Transmission Date: 20201103
  Serious: Yes (Death, Hospitalization, Other)
  Sender: FDA-Public Use
  Company Number: US-PURDUE-USA-2020-0165345

PATIENT
  Age: 9 Year
  Sex: Male

DRUGS (2)
  1. DEXMETHYLPHENIDATE HCL [Suspect]
     Active Substance: DEXMETHYLPHENIDATE HYDROCHLORIDE
     Indication: ATTENTION DEFICIT HYPERACTIVITY DISORDER
     Dosage: UNK, DAILY
     Route: 048
  2. ALBUTEROL                          /00139501/ [Concomitant]
     Active Substance: ALBUTEROL
     Indication: PRODUCT USED FOR UNKNOWN INDICATION

REACTIONS (10)
  - Tremor [Unknown]
  - Brain oedema [Unknown]
  - Hypothermia [Unknown]
  - Bradycardia [Unknown]
  - Tachycardia [Unknown]
  - Hypoxia [Unknown]
  - Water intoxication [Fatal]
  - Unresponsive to stimuli [Unknown]
  - Hypertension [Unknown]
  - Spinal cord compression [Unknown]
